FAERS Safety Report 7713131-5 (Version None)
Quarter: 2011Q3

REPORT INFORMATION
  Report Type: 
  Country: None (occurrence: None)
  Receive Date: 20110826
  Receipt Date: 20110823
  Transmission Date: 20111222
  Serious: Yes (Death, Other)
  Sender: FDA-Public Use
  Company Number: PHHY2011MY75452

PATIENT
  Sex: Male

DRUGS (2)
  1. GLEEVEC [Suspect]
     Dosage: 200 MG, UNK
  2. GLEEVEC [Suspect]
     Indication: GASTROINTESTINAL STROMAL TUMOUR
     Dosage: 400 MG, UNK
     Dates: start: 20080321

REACTIONS (11)
  - FLUID RETENTION [None]
  - METASTASES TO LIVER [None]
  - INFECTION [None]
  - HEPATIC FUNCTION ABNORMAL [None]
  - METASTASES TO PLEURA [None]
  - NEOPLASM PROGRESSION [None]
  - MALAISE [None]
  - OEDEMA [None]
  - NEOPLASM MALIGNANT [None]
  - RENAL IMPAIRMENT [None]
  - CHOLELITHIASIS [None]
